FAERS Safety Report 7074958-9 (Version None)
Quarter: 2010Q4

REPORT INFORMATION
  Report Type: 
  Country: None (occurrence: None)
  Receive Date: 20101029
  Receipt Date: 20101029
  Transmission Date: 20110411
  Serious: Yes (Other)
  Sender: FDA-Public Use
  Company Number: JP-AMGEN-JPNCT2010001240

PATIENT
  Age: 60 Year
  Sex: Male

DRUGS (6)
  1. PANITUMUMAB [Suspect]
     Indication: COLORECTAL CANCER
     Dosage: 350 MG, Q2WK
     Route: 041
     Dates: start: 20100914
  2. IRINOTECAN HYDROCHLORIDE [Concomitant]
     Indication: COLORECTAL CANCER
     Route: 041
     Dates: start: 20100914
  3. FLUOROURACIL [Concomitant]
     Indication: COLORECTAL CANCER
     Route: 040
     Dates: start: 20100914
  4. FLUOROURACIL [Concomitant]
     Route: 041
     Dates: start: 20100914
  5. CALCIUM LEVOFOLINATE [Concomitant]
     Indication: COLORECTAL CANCER
     Route: 041
     Dates: start: 20100914
  6. GRANISETRON HCL [Concomitant]
     Route: 065

REACTIONS (3)
  - DIARRHOEA [None]
  - PANCYTOPENIA [None]
  - SEPSIS [None]
